FAERS Safety Report 4817292-7 (Version None)
Quarter: 2005Q4

REPORT INFORMATION
  Report Type: 
  Country: None (occurrence: None)
  Receive Date: 20051018
  Receipt Date: 20040902
  Transmission Date: 20060501
  Serious: Yes (Other)
  Sender: FDA-Public Use
  Company Number: PHEH2004US09608

PATIENT
  Age: 55 Year
  Sex: Female

DRUGS (3)
  1. ZOMETA [Suspect]
     Indication: METASTASES TO BONE
     Dosage: 4 MG, QMO, INTRAVENOUS
     Route: 042
     Dates: start: 20030601, end: 20040701
  2. DECADRON [Concomitant]
  3. TAXOL [Concomitant]

REACTIONS (3)
  - IMPAIRED HEALING [None]
  - RENAL FAILURE [None]
  - TOOTH EXTRACTION [None]
